FAERS Safety Report 8118711-3 (Version None)
Quarter: 2012Q1

REPORT INFORMATION
  Report Type: 
  Country: None (occurrence: None)
  Receive Date: 20120207
  Receipt Date: 20120201
  Transmission Date: 20120608
  Serious: Yes (Other)
  Sender: FDA-Public Use
  Company Number: JP-PFIZER INC-2012027050

PATIENT
  Age: 39 Year
  Sex: Male

DRUGS (6)
  1. MYCOPHENOLATE MEFETIL [Suspect]
     Indication: KIDNEY TRANSPLANT REJECTION
  2. MYCOPHENOLATE MEFETIL [Suspect]
     Indication: IGA NEPHROPATHY
     Dosage: 1500 MG/DAY
  3. TACROLIMUS [Suspect]
     Indication: KIDNEY TRANSPLANT REJECTION
  4. METHYLPREDNISOLONE [Suspect]
     Indication: IGA NEPHROPATHY
     Dosage: 4 MG/DAY
  5. TACROLIMUS [Suspect]
     Indication: IGA NEPHROPATHY
     Dosage: 2.5 MG/DAY
  6. METHYLPREDNISOLONE [Suspect]
     Indication: KIDNEY TRANSPLANT REJECTION

REACTIONS (1)
  - EYE INFECTION TOXOPLASMAL [None]
